FAERS Safety Report 4317380-8 (Version None)
Quarter: 2004Q1

REPORT INFORMATION
  Report Type: 
  Country: None (occurrence: None)
  Receive Date: 20040312
  Receipt Date: 20040301
  Transmission Date: 20041129
  Serious: Yes (Other)
  Sender: FDA-Public Use
  Company Number: CA-JNJFOC-20040104526

PATIENT
  Age: 57 Year
  Sex: Female
  Weight: 53.978 kg

DRUGS (15)
  1. REMICADE [Suspect]
     Indication: RHEUMATOID ARTHRITIS
     Dosage: SEE IMAGE
     Route: 042
     Dates: start: 20030429, end: 20030429
  2. REMICADE [Suspect]
     Indication: RHEUMATOID ARTHRITIS
     Dosage: SEE IMAGE
     Route: 042
     Dates: start: 20030513, end: 20030513
  3. REMICADE [Suspect]
     Indication: RHEUMATOID ARTHRITIS
     Dosage: SEE IMAGE
     Route: 042
     Dates: start: 20030610, end: 20030610
  4. REMICADE [Suspect]
     Indication: RHEUMATOID ARTHRITIS
     Dosage: SEE IMAGE
     Route: 042
     Dates: start: 20030806, end: 20030806
  5. REMICADE [Suspect]
     Indication: RHEUMATOID ARTHRITIS
     Dosage: SEE IMAGE
     Route: 042
     Dates: start: 20031001, end: 20031001
  6. REMICADE [Suspect]
     Indication: RHEUMATOID ARTHRITIS
     Dosage: SEE IMAGE
     Route: 042
     Dates: start: 20031126, end: 20031126
  7. ARAVA [Concomitant]
  8. PLAQUENIL [Concomitant]
  9. ELAVIL [Concomitant]
  10. CELEBREX [Concomitant]
  11. PROVERA [Concomitant]
  12. OGEN [Concomitant]
  13. GEN-MEDROXY (MEDROXYPROGESTERONE ACETATE) [Concomitant]
  14. EMTEC (PANADEINE CO) [Concomitant]
  15. FLEXERIL [Concomitant]

REACTIONS (6)
  - ARTHRALGIA [None]
  - AXILLARY MASS [None]
  - GENERAL PHYSICAL HEALTH DETERIORATION [None]
  - HYPOAESTHESIA [None]
  - INSOMNIA [None]
  - LUNG NEOPLASM [None]
